FAERS Safety Report 7369736-7 (Version None)
Quarter: 2011Q1

REPORT INFORMATION
  Report Type: 
  Country: None (occurrence: None)
  Receive Date: 20110323
  Receipt Date: 20110318
  Transmission Date: 20110831
  Serious: Yes (Life-Threatening, Other)
  Sender: FDA-Public Use
  Company Number: JP-PFIZER INC-2011035810

PATIENT
  Age: 82 Year
  Sex: Male
  Weight: 54 kg

DRUGS (11)
  1. PARIET [Concomitant]
     Indication: REFLUX OESOPHAGITIS
     Dosage: 10 MG, 2X/DAY
     Route: 048
     Dates: start: 20101115
  2. ADALAT [Concomitant]
     Indication: HYPERTENSION
     Dosage: 20 MG OR 40 MG, A DAY
     Route: 048
     Dates: start: 20101115
  3. ENBREL [Suspect]
     Indication: RHEUMATOID ARTHRITIS
     Dosage: 25 MG, SINGLE
     Route: 058
     Dates: start: 20101208, end: 20101208
  4. PREDONINE [Suspect]
     Indication: RHEUMATOID ARTHRITIS
     Dosage: 10 MG, 1X/DAY
     Route: 048
     Dates: start: 20101115, end: 20110114
  5. PREDONINE [Suspect]
     Dosage: 8 MG, 1X/DAY
     Route: 048
     Dates: start: 20110129, end: 20110228
  6. MUCOSTA [Concomitant]
     Indication: GASTRITIS
     Dosage: 2 DF, 2X/DAY
     Route: 048
     Dates: start: 20110112
  7. ENBREL [Suspect]
     Dosage: 50 MG, ONCE OR TWICE A WEEK
     Route: 058
     Dates: start: 20101217, end: 20110214
  8. RHEUMATREX [Suspect]
     Indication: RHEUMATOID ARTHRITIS
     Dosage: 2 MG, WEEKLY
     Route: 048
     Dates: start: 20110106, end: 20110204
  9. DEPO-MEDROL [Suspect]
     Dosage: 20 MG TWICE WEEKLY
     Route: 014
     Dates: start: 20101115
  10. PREDONINE [Suspect]
     Dosage: 9 MG, 1X/DAY
     Route: 048
     Dates: start: 20110115, end: 20110128
  11. RHEUMATREX [Suspect]
     Dosage: 4 MG, WEEKLY
     Route: 048
     Dates: start: 20110211, end: 20110211

REACTIONS (1)
  - PNEUMONIA [None]
